FAERS Safety Report 4672694-7 (Version None)
Quarter: 2005Q2

REPORT INFORMATION
  Report Type: 
  Country: None (occurrence: None)
  Receive Date: 20050524
  Receipt Date: 20050318
  Transmission Date: 20051028
  Serious: Yes (Death, Life-Threatening, Hospitalization)
  Sender: FDA-Public Use
  Company Number: PE-ROCHE-399327

PATIENT
  Age: 43 Year
  Sex: Female

DRUGS (1)
  1. CAPECITABINE [Suspect]
     Indication: BREAST CANCER
     Route: 048
     Dates: start: 20050125, end: 20050127

REACTIONS (6)
  - CARDIO-RESPIRATORY ARREST [None]
  - CONVULSION [None]
  - DEATH [None]
  - HYPOTENSION [None]
  - NAUSEA [None]
  - VOMITING [None]
